FAERS Safety Report 25508092 (Version 1)
Quarter: 2025Q3

REPORT INFORMATION
  Report Type: Spontaneous
  Country: CN (occurrence: CN)
  Receive Date: 20250703
  Receipt Date: 20250703
  Transmission Date: 20251020
  Serious: Yes (Other)
  Sender: BAXTER
  Company Number: None

PATIENT
  Age: 46 Year
  Sex: Female
  Weight: 54 kg

DRUGS (11)
  1. CYCLOPHOSPHAMIDE [Suspect]
     Active Substance: CYCLOPHOSPHAMIDE
     Indication: Breast cancer female
     Dosage: 0.85 G, QD, (SECOND CYCLE OF EC SEQUENTIAL T REGIMEN CHEMOTHERAPY)
     Route: 041
     Dates: start: 20250611, end: 20250611
  2. SODIUM CHLORIDE [Suspect]
     Active Substance: SODIUM CHLORIDE
     Route: 042
     Dates: start: 202506
  3. SODIUM CHLORIDE [Suspect]
     Active Substance: SODIUM CHLORIDE
     Route: 042
     Dates: start: 202506
  4. EPIRUBICIN [Suspect]
     Active Substance: EPIRUBICIN
     Indication: Breast cancer female
     Dosage: 145 MG, QD (SECOND CYCLE OF EC SEQUENTIAL T REGIMEN CHEMOTHERAPY)
     Route: 041
     Dates: start: 20250611, end: 20250611
  5. SODIUM CHLORIDE [Suspect]
     Active Substance: SODIUM CHLORIDE
     Indication: Breast cancer female
     Dosage: 100 ML, QD (WITH CYCLOPHOSPHAMIDE FOR INJECTION SECOND CYCLE OF EC SEQUENTIAL T REGIMEN CHEMOTHERAPY
     Route: 041
     Dates: start: 20250611, end: 20250611
  6. SODIUM CHLORIDE [Suspect]
     Active Substance: SODIUM CHLORIDE
     Indication: Gastrointestinal disorder prophylaxis
     Dosage: 100 ML, QD (WITH EPIRUBICIN HYDROCHLORIDE FOR SECOND CYCLE OF EC SEQUENTIAL T REGIMEN CHEMOTHERAPY)
     Route: 041
     Dates: start: 20250611, end: 20250611
  7. SODIUM CHLORIDE [Suspect]
     Active Substance: SODIUM CHLORIDE
     Route: 041
     Dates: start: 202506
  8. DEXAMETHASONE SODIUM PHOSPHATE [Concomitant]
     Active Substance: DEXAMETHASONE SODIUM PHOSPHATE
     Indication: Prophylaxis of nausea and vomiting
     Route: 042
     Dates: start: 202506
  9. TROPISETRON HYDROCHLORIDE [Concomitant]
     Active Substance: TROPISETRON HYDROCHLORIDE
     Indication: Prophylaxis of nausea and vomiting
     Route: 042
     Dates: start: 202506
  10. TROPISETRON HYDROCHLORIDE [Concomitant]
     Active Substance: TROPISETRON HYDROCHLORIDE
     Route: 042
     Dates: start: 202506
  11. OMEPRAZOLE SODIUM [Concomitant]
     Active Substance: OMEPRAZOLE SODIUM
     Indication: Gastrointestinal disorder prophylaxis
     Route: 041
     Dates: start: 202506

REACTIONS (6)
  - Hypokalaemia [Recovering/Resolving]
  - Hypocalcaemia [Recovering/Resolving]
  - Nausea [Recovering/Resolving]
  - Decreased appetite [Recovering/Resolving]
  - Face oedema [Recovering/Resolving]
  - Discomfort [Unknown]

NARRATIVE: CASE EVENT DATE: 20250612
